FAERS Safety Report 5019632-5 (Version None)
Quarter: 2006Q2

REPORT INFORMATION
  Report Type: 
  Country: None (occurrence: None)
  Receive Date: 20060601
  Receipt Date: 20060520
  Transmission Date: 20061013
  Serious: Yes (Death)
  Sender: FDA-Public Use
  Company Number: HQWYE507023MAY06

PATIENT
  Age: 71 Year
  Sex: Male

DRUGS (5)
  1. GEMTUZUMAB OZOGAMICIN (GEMTUZUMAB OZOGAMICIN, INJECTION) [Suspect]
     Indication: ACUTE MYELOID LEUKAEMIA
     Dosage: 10 MG 1X PER 1 DAY INTRAVENOUS
     Route: 042
     Dates: start: 20060324, end: 20060324
  2. CYTARABINE [Suspect]
     Indication: ACUTE MYELOID LEUKAEMIA
     Dosage: 180 MG 1X PER 1 DAY INTRAVENOUS
     Route: 042
     Dates: start: 20060406, end: 20060412
  3. ETOPOSIDE [Suspect]
     Indication: ACUTE MYELOID LEUKAEMIA
     Dosage: 180 MG 1X PER 1 DAY INTRAVENOUS
     Route: 042
     Dates: start: 20060406, end: 20060408
  4. NOVANTRONE [Suspect]
     Indication: ACUTE MYELOID LEUKAEMIA
     Dosage: INTRAVENOUS
     Route: 042
     Dates: start: 20060406, end: 20060410
  5. AMPHOTERICIN B [Concomitant]

REACTIONS (9)
  - APLASIA [None]
  - ASPERGILLOSIS [None]
  - BONE MARROW DISORDER [None]
  - DISEASE PROGRESSION [None]
  - FUNGAL INFECTION [None]
  - LUNG INFILTRATION [None]
  - MOUTH HAEMORRHAGE [None]
  - ORAL FUNGAL INFECTION [None]
  - SKIN NECROSIS [None]
